FAERS Safety Report 4633563-1 (Version None)
Quarter: 2005Q2

REPORT INFORMATION
  Report Type: 
  Country: None (occurrence: None)
  Receive Date: 20050411
  Receipt Date: 20050411
  Transmission Date: 20051028
  Serious: No
  Sender: FDA-Public Use
  Company Number: None

PATIENT
  Age: 44 Year
  Sex: Female
  Weight: 53.6 kg

DRUGS (7)
  1. CELEBREX [Suspect]
     Indication: BUTTOCK PAIN
     Dosage: 200MG   DAILY    ORAL
     Route: 048
     Dates: start: 20041214, end: 20041220
  2. CELEBREX [Suspect]
     Indication: PAIN IN EXTREMITY
     Dosage: 200MG   DAILY    ORAL
     Route: 048
     Dates: start: 20041214, end: 20041220
  3. CELEBREX [Suspect]
     Indication: ARTHRALGIA
     Dosage: 100MG  BID PRN   ORAL
     Route: 048
     Dates: start: 20041221, end: 20050324
  4. CELEBREX [Suspect]
     Indication: PAIN IN EXTREMITY
     Dosage: 100MG  BID PRN   ORAL
     Route: 048
     Dates: start: 20041221, end: 20050324
  5. DIPHENHYDRAMINE HCL [Concomitant]
  6. RISPERIDONE [Concomitant]
  7. ACETAMINOPHEN [Concomitant]

REACTIONS (1)
  - BONE MARROW DEPRESSION [None]
